FAERS Safety Report 15863635 (Version 1)
Quarter: 2019Q1

REPORT INFORMATION
  Report Type: Spontaneous
  Country: JP (occurrence: JP)
  Receive Date: 20190124
  Receipt Date: 20190124
  Transmission Date: 20190417
  Serious: Yes (Death)
  Sender: FDA-Public Use
  Company Number: JP-009507513-1901JPN001557J

PATIENT
  Sex: Male

DRUGS (2)
  1. STROMECTOL [Suspect]
     Active Substance: IVERMECTIN
     Indication: ACARODERMATITIS
     Dosage: UNK
     Route: 048
  2. PHENOTHRIN [Concomitant]
     Active Substance: PHENOTHRIN
     Indication: ACARODERMATITIS
     Dosage: UNK
     Route: 051

REACTIONS (1)
  - Condition aggravated [Fatal]
